FAERS Safety Report 10497194 (Version 1)
Quarter: 2014Q4

REPORT INFORMATION
  Report Type: Spontaneous
  Country: US (occurrence: US)
  Receive Date: 20141006
  Receipt Date: 20141006
  Transmission Date: 20150528
  Serious: Yes (Life-Threatening)
  Sender: FDA-Public Use
  Company Number: US-BAYER-2014-143947

PATIENT
  Age: 27 Year
  Sex: Female

DRUGS (3)
  1. METHADONE [Interacting]
     Active Substance: METHADONE HYDROCHLORIDE
     Indication: NEURALGIA
     Dosage: 10 MG, TID
  2. CIPROFLOXACIN. [Suspect]
     Active Substance: CIPROFLOXACIN
     Indication: URINARY TRACT INFECTION
  3. PHENYTOIN-METHYLPHENOBARBITAL [Interacting]
     Active Substance: MEPHOBARBITAL\PHENYTOIN
     Indication: SEIZURE

REACTIONS (3)
  - Drug interaction [Recovered/Resolved]
  - Withdrawal syndrome [None]
  - Overdose [Recovered/Resolved]
